FAERS Safety Report 13717567 (Version 2)
Quarter: 2017Q3

REPORT INFORMATION
  Report Type: Spontaneous
  Country: US (occurrence: US)
  Receive Date: 20170705
  Receipt Date: 20170721
  Transmission Date: 20171127
  Serious: No
  Sender: FDA-Public Use
  Company Number: US-GLAXOSMITHKLINE-US2017099331

PATIENT
  Age: 82 Year
  Sex: Female

DRUGS (1)
  1. VOLTAREN [Suspect]
     Active Substance: DICLOFENAC SODIUM
     Indication: VARICOSE VEIN
     Dosage: UNK (USING 8 GRAMS ON HER LEFT LEG AND 8 GRAMS ON HER RIGHT LEG)
     Dates: start: 201704

REACTIONS (4)
  - Extra dose administered [Unknown]
  - Drug effective for unapproved indication [Unknown]
  - Drug administered at inappropriate site [Unknown]
  - Off label use [Unknown]
